FAERS Safety Report 9454706 (Version 1)
Quarter: 2013Q3

REPORT INFORMATION
  Report Type: Spontaneous
  Country: US (occurrence: US)
  Receive Date: 20130812
  Receipt Date: 20130812
  Transmission Date: 20140515
  Serious: No
  Sender: FDA-Public Use
  Company Number: US-009507513-1308USA002397

PATIENT
  Age: 95 Year
  Sex: Female

DRUGS (1)
  1. LOTRISONE [Suspect]
     Indication: ANTIFUNGAL PROPHYLAXIS
     Dosage: UNK
     Route: 061

REACTIONS (1)
  - Local swelling [Unknown]
